FAERS Safety Report 6997873-5 (Version None)
Quarter: 2010Q3

REPORT INFORMATION
  Report Type: 
  Country: None (occurrence: None)
  Receive Date: 20100920
  Receipt Date: 20100903
  Transmission Date: 20110219
  Serious: Yes (Hospitalization)
  Sender: FDA-Public Use
  Company Number: US-BAYER-201024885NA

PATIENT
  Age: 32 Year
  Sex: Female
  Weight: 137 kg

DRUGS (13)
  1. YASMIN [Suspect]
     Indication: CONTRACEPTION
     Route: 048
     Dates: start: 20020301, end: 20080601
  2. CELEXA [Concomitant]
     Indication: DEPRESSION
     Dates: start: 20060101, end: 20080801
  3. SEROQUEL [Concomitant]
     Indication: AFFECTIVE DISORDER
     Dates: start: 20080601, end: 20081201
  4. ATIVAN [Concomitant]
     Indication: ANXIETY
     Dates: start: 20080201, end: 20080701
  5. LUNESTA [Concomitant]
     Indication: SLEEP DISORDER
     Dates: start: 20080601, end: 20081101
  6. TOPAMAX [Concomitant]
     Indication: AFFECTIVE DISORDER
     Dates: start: 20080501, end: 20080601
  7. TRAZODONE HCL [Concomitant]
     Indication: DEPRESSION
     Dates: start: 20060301, end: 20080401
  8. DEPAKOTE [Concomitant]
     Indication: AFFECTIVE DISORDER
     Dates: start: 20080101, end: 20080101
  9. TYLENOL [Concomitant]
  10. IBUPROFEN [Concomitant]
  11. LIPITOR [Concomitant]
     Dates: start: 20080701
  12. CITALOPRAM HYDROBROMIDE [Concomitant]
     Dates: start: 20080613
  13. LORAZEPAM [Concomitant]
     Dates: start: 20080611

REACTIONS (4)
  - DYSPNOEA [None]
  - PLEURAL EFFUSION [None]
  - PLEURITIC PAIN [None]
  - PULMONARY EMBOLISM [None]
